FAERS Safety Report 6656854-1 (Version None)
Quarter: 2010Q1

REPORT INFORMATION
  Report Type: 
  Country: None (occurrence: None)
  Receive Date: 20100329
  Receipt Date: 20100329
  Transmission Date: 20100710
  Serious: Yes (Other)
  Sender: FDA-Public Use
  Company Number: None

PATIENT
  Sex: Female
  Weight: 74.8435 kg

DRUGS (2)
  1. LEVAQUIN [Suspect]
     Indication: CLOSTRIDIAL INFECTION
     Dosage: 500 MG 1 TIME DAILY PO
     Route: 048
     Dates: start: 20100319
  2. LEVAQUIN [Suspect]
     Indication: CLOSTRIDIUM DIFFICILE COLITIS
     Dosage: 500 MG 1 TIME DAILY PO
     Route: 048
     Dates: start: 20100319

REACTIONS (7)
  - ARTHRALGIA [None]
  - BACK PAIN [None]
  - EATING DISORDER [None]
  - FATIGUE [None]
  - GAIT DISTURBANCE [None]
  - HEADACHE [None]
  - NAUSEA [None]
